FAERS Safety Report 9413461 (Version 2)
Quarter: 2014Q2

REPORT INFORMATION
  Report Type: Spontaneous
  Country: ES (occurrence: ES)
  Receive Date: 20130722
  Receipt Date: 20140509
  Transmission Date: 20141212
  Serious: Yes (Other)
  Sender: FDA-Public Use
  Company Number: ES-VERTEX PHARMACEUTICALS INC-2013-008151

PATIENT
  Age: 58 Year
  Sex: Female

DRUGS (4)
  1. INCIVO [Suspect]
     Indication: HEPATITIS C
     Route: 048
  2. INCIVO [Suspect]
     Route: 048
  3. RIBAVIRIN [Concomitant]
     Indication: HEPATITIS C
  4. PEGYLATED INTERFERON [Concomitant]
     Indication: HEPATITIS C

REACTIONS (2)
  - Drug eruption [Recovered/Resolved]
  - Urticaria [Recovered/Resolved]
